FAERS Safety Report 4848728-3 (Version None)
Quarter: 2005Q4

REPORT INFORMATION
  Report Type: 
  Country: None (occurrence: None)
  Receive Date: 20051208
  Receipt Date: 20051206
  Transmission Date: 20060501
  Serious: Yes (Life-Threatening, Hospitalization, Other)
  Sender: FDA-Public Use
  Company Number: DE-BRISTOL-MYERS SQUIBB COMPANY-13206511

PATIENT
  Age: 62 Year
  Sex: Female
  Weight: 64 kg

DRUGS (9)
  1. TAXOL [Suspect]
     Indication: BREAST CANCER
     Route: 042
     Dates: start: 20050926, end: 20050926
  2. EPIRUBICIN [Suspect]
     Indication: BREAST CANCER
     Route: 042
     Dates: start: 20050912, end: 20050912
  3. DEXAMETHASONE [Suspect]
     Indication: PROPHYLAXIS OF NAUSEA AND VOMITING
     Dosage: 20 MG ON DAY 1
     Route: 042
     Dates: start: 20050926, end: 20050927
  4. DEXAMETHASONE [Suspect]
     Dosage: 8 MG DAY 2
     Route: 048
     Dates: start: 20050926, end: 20050927
  5. NEUPOGEN [Concomitant]
     Route: 058
     Dates: start: 20050725, end: 20050927
  6. GRANISETRON [Concomitant]
     Dates: start: 20050725, end: 20050927
  7. RANITIDINE [Concomitant]
     Route: 042
     Dates: start: 20050926, end: 20050926
  8. CLEMASTINE [Concomitant]
     Route: 042
     Dates: start: 20050926, end: 20050926
  9. EPOGEN [Concomitant]
     Route: 058
     Dates: start: 20050725, end: 20050926

REACTIONS (4)
  - CHILLS [None]
  - LEUKOCYTOSIS [None]
  - PNEUMONIA PRIMARY ATYPICAL [None]
  - PYREXIA [None]
